FAERS Safety Report 16399015 (Version 1)
Quarter: 2019Q2

REPORT INFORMATION
  Report Type: Spontaneous
  Country: CN (occurrence: CN)
  Receive Date: 20190606
  Receipt Date: 20190606
  Transmission Date: 20190711
  Serious: Yes (Other)
  Sender: FDA-Public Use
  Company Number: CN-ASTRAZENECA-2019SE81962

PATIENT
  Sex: Female

DRUGS (1)
  1. TICAGRELOR. [Suspect]
     Active Substance: TICAGRELOR
     Indication: PREOPERATIVE CARE
     Dosage: 180 MG
     Route: 048

REACTIONS (2)
  - Asphyxia [Recovered/Resolved]
  - Hyperhidrosis [Recovered/Resolved]
